FAERS Safety Report 15901404 (Version 1)
Quarter: 2019Q1

REPORT INFORMATION
  Report Type: Spontaneous
  Country: US (occurrence: US)
  Receive Date: 20190201
  Receipt Date: 20190201
  Transmission Date: 20190417
  Serious: Yes (Other)
  Sender: FDA-Public Use
  Company Number: None

PATIENT
  Age: 49 Year
  Sex: Male
  Weight: 81 kg

DRUGS (7)
  1. RESTORIL [Concomitant]
     Active Substance: TEMAZEPAM
     Dates: start: 20150305
  2. DESIPRAMINE [Concomitant]
     Active Substance: DESIPRAMINE
     Dates: start: 20130404
  3. DEPAKOTE [Concomitant]
     Active Substance: DIVALPROEX SODIUM
     Dates: start: 20131004
  4. INVEGA [Concomitant]
     Active Substance: PALIPERIDONE
     Dates: start: 20100902
  5. BELSOMRA [Suspect]
     Active Substance: SUVOREXANT
     Indication: INSOMNIA
     Route: 048
     Dates: start: 20190129, end: 20190131
  6. SEROQUEL [Concomitant]
     Active Substance: QUETIAPINE FUMARATE
     Dates: start: 20120305
  7. LAMICTAL [Concomitant]
     Active Substance: LAMOTRIGINE
     Dates: start: 20100713

REACTIONS (1)
  - Aggression [None]

NARRATIVE: CASE EVENT DATE: 20190131
